FAERS Safety Report 8573390 (Version 4)
Quarter: 2013Q1

REPORT INFORMATION
  Report Type: Spontaneous
  Country: US (occurrence: US)
  Receive Date: 20120522
  Receipt Date: 20130130
  Transmission Date: 20140127
  Serious: Yes (Other)
  Sender: FDA-Public Use
  Company Number: US-BAYER-2012-048956

PATIENT
  Age: 23 Year
  Sex: Female
  Weight: 159 kg

DRUGS (1)
  1. MIRENA [Suspect]
     Indication: CONTRACEPTION
     Dosage: 20 MCG/24HR, CONT
     Route: 015
     Dates: start: 20110119, end: 20120328

REACTIONS (7)
  - Pregnancy with contraceptive device [None]
  - Abortion threatened [Recovering/Resolving]
  - Device expulsion [None]
  - Haemorrhage in pregnancy [Recovering/Resolving]
  - Subchorionic haematoma [Recovering/Resolving]
  - Glucose tolerance test abnormal [None]
  - Drug ineffective [None]
